FAERS Safety Report 9516111 (Version 1)
Quarter: 2013Q1

REPORT INFORMATION
  Report Type: Spontaneous
  Country: US (occurrence: None)
  Receive Date: 20130305
  Receipt Date: 20130305
  Transmission Date: 20140127
  Serious: Yes (Hospitalization, Other)
  Sender: FDA-Public Use
  Company Number: 163-21880-12081465

PATIENT
  Age: 81 None
  Sex: Female

DRUGS (3)
  1. REVLIMID [Suspect]
     Indication: PLASMA CELL MYELOMA
     Dosage: 10 MG,  3 IN 1 WK,  PO
     Route: 048
     Dates: start: 20110315
  2. LASIX (FUROSEMIDE) (UNKNOWN) [Concomitant]
  3. MAGNESIUM OXIDE (MAGNESIUM OXIDE) [Concomitant]

REACTIONS (6)
  - Fluid retention [None]
  - Abdominal discomfort [None]
  - Nausea [None]
  - Diarrhoea [None]
  - Pruritus [None]
  - Fatigue [None]
